FAERS Safety Report 17769531 (Version 1)
Quarter: 2020Q2

REPORT INFORMATION
  Report Type: Report from Study
  Country: IN (occurrence: IN)
  Receive Date: 20200512
  Receipt Date: 20200512
  Transmission Date: 20200714
  Serious: Yes (Hospitalization)
  Sender: FDA-Public Use
  Company Number: PHHY2018IN036169

PATIENT
  Age: 72 Year
  Sex: Male

DRUGS (8)
  1. VOTRIENT [Suspect]
     Active Substance: PAZOPANIB HYDROCHLORIDE
     Indication: RENAL CELL CARCINOMA
     Dosage: 400 MG, QD
     Route: 048
     Dates: start: 20150313, end: 20180104
  2. VOTRIENT [Suspect]
     Active Substance: PAZOPANIB HYDROCHLORIDE
     Dosage: 400 MG, QD
     Route: 048
     Dates: start: 20180118
  3. VOTRIENT [Suspect]
     Active Substance: PAZOPANIB HYDROCHLORIDE
     Dosage: 200 MG, BID  (WEDNESDAY, SUNDAY)
     Route: 048
     Dates: start: 20180912, end: 20190704
  4. VOTRIENT [Suspect]
     Active Substance: PAZOPANIB HYDROCHLORIDE
     Dosage: 200 MG, QD (MONDAY, TUESDAY, THURSDAY, FRIDAY, SATURDAY)
     Route: 048
     Dates: start: 20191111
  5. VOTRIENT [Suspect]
     Active Substance: PAZOPANIB HYDROCHLORIDE
     Dosage: 200 MG, QD (MONDAY, TUESDAY, THURSDAY, FRIDAY, SATURDAY)
     Route: 065
  6. VOTRIENT [Suspect]
     Active Substance: PAZOPANIB HYDROCHLORIDE
     Dosage: 200 MG, BID (WEDNESDAY, SUNDAY)
     Route: 065
  7. VOTRIENT [Suspect]
     Active Substance: PAZOPANIB HYDROCHLORIDE
     Dosage: 200 MG, QD  (MONDAY, TUESDAY, THURSDAY, FRIDAY, SATURDAY)
     Route: 048
     Dates: start: 20180912, end: 20190704
  8. VOTRIENT [Suspect]
     Active Substance: PAZOPANIB HYDROCHLORIDE
     Dosage: 200 MG, BID  (WEDNESDAY, SUNDAY)
     Route: 048
     Dates: start: 20191111

REACTIONS (4)
  - Dysarthria [Recovered/Resolved]
  - Hypoaesthesia [Recovered/Resolved]
  - Infection [Recovered/Resolved]
  - Pyrexia [Recovered/Resolved]

NARRATIVE: CASE EVENT DATE: 20180102
